FAERS Safety Report 20363819 (Version 1)
Quarter: 2022Q1

REPORT INFORMATION
  Report Type: Spontaneous
  Country: GB (occurrence: GB)
  Receive Date: 20220121
  Receipt Date: 20220121
  Transmission Date: 20220424
  Serious: Yes (Hospitalization, Other)
  Sender: FDA-Public Use
  Company Number: None

PATIENT
  Age: 4 Year
  Sex: Female
  Weight: 18 kg

DRUGS (6)
  1. ORKAMBI [Suspect]
     Active Substance: IVACAFTOR\LUMACAFTOR
     Indication: Cystic fibrosis
     Dosage: 1 SACHET (150 MG/ 188 MG) GRANULES, PER DAY
     Route: 048
     Dates: start: 20200118
  2. AMOXICILLIN\CLAVULANATE POTASSIUM [Concomitant]
     Active Substance: AMOXICILLIN\CLAVULANATE POTASSIUM
  3. COTRIMOXAZOLE [Concomitant]
     Active Substance: SULFAMETHOXAZOLE\TRIMETHOPRIM
  4. CREON [Concomitant]
     Active Substance: PANCRELIPASE AMYLASE\PANCRELIPASE LIPASE\PANCRELIPASE PROTEASE
  5. FLUCLOXACILLIN [Concomitant]
     Active Substance: FLUCLOXACILLIN
  6. PARAVIT CF [Concomitant]

REACTIONS (3)
  - Nephroblastoma [Recovered/Resolved with Sequelae]
  - Sepsis [Unknown]
  - Abdominal mass [Unknown]

NARRATIVE: CASE EVENT DATE: 20210708
